FAERS Safety Report 9297947 (Version 1)
Quarter: 2013Q2

REPORT INFORMATION
  Report Type: Spontaneous
  Country: DE (occurrence: DE)
  Receive Date: 20130520
  Receipt Date: 20130520
  Transmission Date: 20140414
  Serious: Yes (Congenital Anomaly, Other)
  Sender: FDA-Public Use
  Company Number: DE-PFIZER INC-2013151595

PATIENT
  Sex: Male
  Weight: 3.51 kg

DRUGS (3)
  1. VENLAFAXINE HCL [Suspect]
     Indication: ANXIETY DISORDER
     Dosage: 37.5 MG, 1X/DAY
     Route: 064
     Dates: start: 20111027, end: 20120729
  2. METOPROLOL [Concomitant]
     Indication: TACHYCARDIA
     Dosage: 47.5 MG, 1X/DAY
     Route: 064
     Dates: start: 20111027, end: 20120729
  3. FEMIBION [Concomitant]
     Indication: PROPHYLAXIS OF NEURAL TUBE DEFECT
     Dosage: 0.8 MG, 1X/DAY
     Route: 064

REACTIONS (2)
  - Maternal exposure during pregnancy [Recovered/Resolved]
  - Ventricular septal defect [Recovered/Resolved]
